FAERS Safety Report 5675314-8 (Version None)
Quarter: 2008Q2

REPORT INFORMATION
  Report Type: 
  Country: None (occurrence: None)
  Receive Date: 20080307
  Receipt Date: 20070829
  Transmission Date: 20081010
  Serious: Yes (Other)
  Sender: FDA-Public Use
  Company Number: US200708006641

PATIENT
  Age: 70 Year
  Sex: Male

DRUGS (3)
  1. GEMZAR [Suspect]
     Indication: HODGKIN'S DISEASE
     Dosage: 1000 MG/M2, OTHER
  2. NAVELBINE [Concomitant]
  3. DOXIL [Concomitant]

REACTIONS (3)
  - COUGH [None]
  - LUNG INFILTRATION [None]
  - PULMONARY TOXICITY [None]
